FAERS Safety Report 7207088-3 (Version None)
Quarter: 2011Q1

REPORT INFORMATION
  Report Type: 
  Country: None (occurrence: None)
  Receive Date: 20110103
  Receipt Date: 20101222
  Transmission Date: 20110831
  Serious: Yes (Other)
  Sender: FDA-Public Use
  Company Number: B0691767A

PATIENT
  Age: 34 Year
  Sex: Female

DRUGS (2)
  1. HERCEPTIN [Concomitant]
     Indication: BREAST CANCER
     Route: 065
  2. TYKERB [Suspect]
     Indication: BREAST CANCER
     Dosage: 1250MG PER DAY
     Route: 065
     Dates: start: 20091101

REACTIONS (1)
  - NEUTROPENIA [None]
